FAERS Safety Report 18285283 (Version 2)
Quarter: 2021Q3

REPORT INFORMATION
  Report Type: Spontaneous
  Country: US (occurrence: US)
  Receive Date: 20200918
  Receipt Date: 20210727
  Transmission Date: 20211014
  Serious: Yes (Other)
  Sender: FDA-Public Use
  Company Number: US-TEVA-2020-US-1829294

PATIENT
  Sex: Male

DRUGS (2)
  1. VALSARTAN SOLCO [Suspect]
     Active Substance: VALSARTAN
     Indication: BLOOD PRESSURE MEASUREMENT
     Route: 065
     Dates: start: 20170206, end: 20180706
  2. VALSARTAN SOLCO [Suspect]
     Active Substance: VALSARTAN
     Route: 065
     Dates: start: 20180706, end: 20181006

REACTIONS (1)
  - Colorectal cancer [Unknown]
